FAERS Safety Report 9923952 (Version 1)
Quarter: 2014Q1

REPORT INFORMATION
  Report Type: Report from Study
  Country: BR (occurrence: BR)
  Receive Date: 20140225
  Receipt Date: 20140225
  Transmission Date: 20141002
  Serious: Yes (Other)
  Sender: FDA-Public Use
  Company Number: PHHY2014BR020329

PATIENT
  Age: 59 Year
  Sex: Male
  Weight: 98 kg

DRUGS (4)
  1. METFORMIN HYDROCHLORIDE SANDOZ [Suspect]
     Indication: DIABETES MELLITUS
     Dosage: 500 MG, Q12H
     Route: 048
     Dates: start: 200001, end: 201312
  2. ATACAND [Concomitant]
     Indication: CARDIAC DISORDER
     Dates: start: 200101
  3. ROSUVASTATIN [Concomitant]
     Indication: BLOOD CHOLESTEROL INCREASED
     Dates: start: 201001
  4. AAS PROTECT [Concomitant]
     Indication: CARDIAC DISORDER
     Dates: start: 201101

REACTIONS (2)
  - Malignant mediastinal neoplasm [Recovering/Resolving]
  - Diarrhoea [Recovering/Resolving]
